FAERS Safety Report 4428355-2 (Version None)
Quarter: 2004Q3

REPORT INFORMATION
  Report Type: 
  Country: None (occurrence: None)
  Receive Date: 20040813
  Receipt Date: 20040722
  Transmission Date: 20050211
  Serious: Yes (Hospitalization)
  Sender: FDA-Public Use
  Company Number: 2004217074US

PATIENT
  Age: 89 Year
  Sex: Female
  Weight: 63 kg

DRUGS (10)
  1. EXEMESTANE (EXEMESTANE) CODE BROKEN EXEMESTANE VS TAMOXIFEN) TABLET [Suspect]
     Indication: BREAST CANCER
     Dosage: 25 MG, QD, ORAL
     Route: 048
     Dates: start: 20030127, end: 20040526
  2. POTASSIUM CHLORIDE [Concomitant]
  3. HYDROCHLOROTHIAZIDE AND LISINOPRIL [Concomitant]
  4. LANOXIN [Concomitant]
  5. VERELAN (VERAPAMIL HYDROCHLORIDE) [Concomitant]
  6. NEURONTIN [Concomitant]
  7. WARFARIN SODIUM [Concomitant]
  8. XANAX [Concomitant]
  9. BEXTRA (VALDECOXIB, VALDECOXIB) TABLET [Concomitant]
  10. LASIX [Concomitant]

REACTIONS (8)
  - ADRENOCORTICAL INSUFFICIENCY ACUTE [None]
  - ASTHENIA [None]
  - BREAST CANCER RECURRENT [None]
  - CYSTITIS [None]
  - GENERAL PHYSICAL HEALTH DETERIORATION [None]
  - HYPONATRAEMIA [None]
  - LIVER FUNCTION TEST ABNORMAL [None]
  - METASTASES TO CENTRAL NERVOUS SYSTEM [None]
